FAERS Safety Report 8061289-3 (Version None)
Quarter: 2012Q1

REPORT INFORMATION
  Report Type: 
  Country: None (occurrence: None)
  Receive Date: 20120120
  Receipt Date: 20110816
  Transmission Date: 20120608
  Serious: No
  Sender: FDA-Public Use
  Company Number: US-ALLERGAN-1111011US

PATIENT
  Age: 52 Year
  Sex: Female

DRUGS (1)
  1. RESTASIS [Suspect]
     Indication: DRY EYE
     Dosage: 1 GTT, BID
     Route: 047
     Dates: start: 20100801, end: 20110401

REACTIONS (6)
  - FOREIGN BODY SENSATION IN EYES [None]
  - VISION BLURRED [None]
  - EYE PAIN [None]
  - HYPOAESTHESIA [None]
  - EYE DISCHARGE [None]
  - OCULAR HYPERAEMIA [None]
